FAERS Safety Report 16807458 (Version 1)
Quarter: 2019Q3

REPORT INFORMATION
  Report Type: Report from Study
  Country: US (occurrence: US)
  Receive Date: 20190913
  Receipt Date: 20190913
  Transmission Date: 20191005
  Serious: Yes (Hospitalization)
  Sender: FDA-Public Use
  Company Number: US-JNJFOC-20190910549

PATIENT
  Sex: Male

DRUGS (1)
  1. IMBRUVICA [Suspect]
     Active Substance: IBRUTINIB
     Indication: CHRONIC LYMPHOCYTIC LEUKAEMIA REFRACTORY
     Dosage: 280 MG, QD
     Route: 048
     Dates: start: 20190119

REACTIONS (11)
  - Feeling abnormal [Unknown]
  - Joint swelling [Unknown]
  - Nausea [Unknown]
  - Muscle spasms [Unknown]
  - Abdominal pain [Unknown]
  - Contusion [Unknown]
  - Asthenia [Unknown]
  - Peripheral swelling [Unknown]
  - Discharge [Unknown]
  - Constipation [Unknown]
  - Skin ulcer [Unknown]
